FAERS Safety Report 8504480-1 (Version None)
Quarter: 2012Q3

REPORT INFORMATION
  Report Type: 
  Country: None (occurrence: None)
  Receive Date: 20120711
  Receipt Date: 20120703
  Transmission Date: 20120928
  Serious: Yes (Death, Hospitalization)
  Sender: FDA-Public Use
  Company Number: CA-009507513-2012SP028673

PATIENT

DRUGS (7)
  1. PEGETRON [Suspect]
     Indication: HEPATITIS C
     Dosage: 150 MICROGRAM, UNK
     Dates: start: 20120201, end: 20120419
  2. RIBAVIRIN [Suspect]
     Indication: HEPATITIS C
     Dosage: 1200 MG, UNK
     Dates: start: 20120201, end: 20120419
  3. EPREX [Concomitant]
     Indication: ANAEMIA
     Dosage: 40000 IU, QW
     Route: 060
     Dates: start: 20120229
  4. ALDACTONE [Suspect]
     Indication: OEDEMA PERIPHERAL
  5. VICTRELIS [Suspect]
     Indication: HEPATITIS C
  6. RIBAVIRIN [Suspect]
     Dosage: 600 MG, UNK
  7. METHADON HCL TAB [Concomitant]
     Dosage: 25 MG, QD

REACTIONS (4)
  - PULMONARY FIBROSIS [None]
  - LUNG DISORDER [None]
  - PYREXIA [None]
  - OXYGEN SATURATION DECREASED [None]
